FAERS Safety Report 18315387 (Version 1)
Quarter: 2020Q3

REPORT INFORMATION
  Report Type: Spontaneous
  Country: US (occurrence: US)
  Receive Date: 20200926
  Receipt Date: 20200926
  Transmission Date: 20201103
  Serious: Yes (Hospitalization, Other)
  Sender: FDA-Public Use
  Company Number: US-ACCORD-201050

PATIENT
  Age: 56 Year
  Sex: Male

DRUGS (7)
  1. SUCRALFATE. [Concomitant]
     Active Substance: SUCRALFATE
     Dosage: 1 G FOUR TIMES A DAY
     Route: 048
  2. ASPIRIN. [Concomitant]
     Active Substance: ASPIRIN
  3. LIDOCAINE. [Concomitant]
     Active Substance: LIDOCAINE
     Route: 048
  4. MYCOPHENOLIC ACID. [Suspect]
     Active Substance: MYCOPHENOLIC ACID
     Indication: IMMUNOSUPPRESSION
     Dosage: 1000 MG TWICE A DAY
  5. TACROLIMUS. [Concomitant]
     Active Substance: TACROLIMUS
     Indication: IMMUNOSUPPRESSION
     Dosage: 3 MG TWICE A DAY
  6. PREDNISONE. [Concomitant]
     Active Substance: PREDNISONE
     Indication: IMMUNOSUPPRESSION
     Dosage: 30 MG ONCE A DAY
  7. PANTOPRAZOLE [Concomitant]
     Active Substance: PANTOPRAZOLE
     Indication: PROPHYLAXIS AGAINST GASTROINTESTINAL ULCER
     Dosage: 40 MG ONCE A DAY?INTRAVENOUS PANTOPRAZOLE 40 MG TWICE A DAY
     Route: 042

REACTIONS (8)
  - Iron deficiency anaemia [Recovering/Resolving]
  - Asthenia [Recovered/Resolved]
  - Condition aggravated [Recovered/Resolved]
  - Gastric mucosal hypertrophy [Unknown]
  - Leukopenia [Recovered/Resolved]
  - Aphthous ulcer [Recovered/Resolved]
  - Thrombocytosis [Unknown]
  - Gastric ulcer [Recovered/Resolved]
